FAERS Safety Report 5256988-2 (Version None)
Quarter: 2007Q1

REPORT INFORMATION
  Report Type: 
  Country: None (occurrence: None)
  Receive Date: 20070307
  Receipt Date: 20070228
  Transmission Date: 20070707
  Serious: Yes (Death, Disabling)
  Sender: FDA-Public Use
  Company Number: 2006UW21619

PATIENT
  Sex: Male
  Weight: 147.7 kg

DRUGS (2)
  1. SEROQUEL [Suspect]
     Indication: DEPRESSION
     Route: 048
     Dates: start: 20030101, end: 20030101
  2. RISPERDAL [Concomitant]

REACTIONS (2)
  - DEATH [None]
  - DIABETES MELLITUS [None]
